FAERS Safety Report 19389993 (Version 1)
Quarter: 2021Q2

REPORT INFORMATION
  Report Type: Spontaneous
  Country: US (occurrence: US)
  Receive Date: 20210608
  Receipt Date: 20210608
  Transmission Date: 20210717
  Serious: No
  Sender: FDA-Public Use
  Company Number: US-ASTRAZENECA-2021A435068

PATIENT
  Sex: Female
  Weight: 50.3 kg

DRUGS (1)
  1. BREZTRI AEROSPHERE [Suspect]
     Active Substance: BUDESONIDE\FORMOTEROL\GLYCOPYRRONIUM
     Indication: EMPHYSEMA
     Route: 055
     Dates: start: 202104

REACTIONS (3)
  - Visual impairment [Unknown]
  - Device malfunction [Unknown]
  - Wrong technique in device usage process [Unknown]
